FAERS Safety Report 23350391 (Version 3)
Quarter: 2024Q2

REPORT INFORMATION
  Report Type: Spontaneous
  Country: JP (occurrence: JP)
  Receive Date: 20231229
  Receipt Date: 20240503
  Transmission Date: 20240716
  Serious: Yes (Hospitalization)
  Sender: FDA-Public Use
  Company Number: JP-ABBVIE-5563513

PATIENT
  Age: 74 Year
  Sex: Female

DRUGS (33)
  1. RINVOQ [Suspect]
     Active Substance: UPADACITINIB
     Indication: Rheumatoid arthritis
     Dosage: FORM STRENGTH: 15 MILLIGRAM
     Route: 048
     Dates: start: 20230801, end: 20231025
  2. ELDECALCITOL [Concomitant]
     Active Substance: ELDECALCITOL
     Indication: Osteoporosis
     Dosage: 0.75 MICROGRAM
     Route: 048
     Dates: start: 20180328
  3. ELDECALCITOL [Concomitant]
     Active Substance: ELDECALCITOL
     Indication: Osteoporosis
     Dosage: FORM STRENGTH: 0.5
     Dates: start: 20170419, end: 20180327
  4. SACUBITRIL\VALSARTAN [Concomitant]
     Active Substance: SACUBITRIL\VALSARTAN
     Indication: Hypertension
     Dosage: 200 MILLIGRAM
     Route: 048
     Dates: start: 20220324
  5. SACUBITRIL\VALSARTAN [Concomitant]
     Active Substance: SACUBITRIL\VALSARTAN
     Indication: Hypertension
     Dosage: 100 MILLIGRAM
     Dates: start: 20220309, end: 20220323
  6. FOLIC ACID [Concomitant]
     Active Substance: FOLIC ACID
     Indication: Rheumatoid arthritis
     Dosage: 10 MILLIGRAM
     Route: 048
  7. PITAVASTATIN CALCIUM [Concomitant]
     Active Substance: PITAVASTATIN CALCIUM
     Indication: Dyslipidaemia
     Dosage: 2 MILLIGRAM
     Route: 048
     Dates: start: 20170919
  8. CEVIMELINE HYDROCHLORIDE [Concomitant]
     Active Substance: CEVIMELINE HYDROCHLORIDE
     Indication: Sjogren^s syndrome
     Dosage: TIME INTERVAL: 0.33333333 DAYS: 90 MILLIGRAM
     Route: 048
     Dates: start: 20050412, end: 20110215
  9. CEVIMELINE HYDROCHLORIDE [Concomitant]
     Active Substance: CEVIMELINE HYDROCHLORIDE
     Indication: Sjogren^s syndrome
     Dosage: TIME INTERVAL: 0.33333333 DAYS: 90 MILLIGRAM
     Route: 048
     Dates: start: 20160511
  10. TRICHLORMETHIAZIDE [Concomitant]
     Active Substance: TRICHLORMETHIAZIDE
     Indication: Hypertension
     Dosage: 2 MILLIGRAM
     Route: 048
     Dates: start: 20220518
  11. TRICHLORMETHIAZIDE [Concomitant]
     Active Substance: TRICHLORMETHIAZIDE
     Indication: Hypertension
     Dosage: 1 MILLIGRAM
     Dates: start: 20220427
  12. HERBALS [Concomitant]
     Active Substance: HERBALS
     Indication: Sjogren^s syndrome
     Dosage: 6 GRAM?BAKUMONDOTO EXTRACT
     Route: 048
     Dates: start: 20170818
  13. AZITHROMYCIN DIHYDRATE [Suspect]
     Active Substance: AZITHROMYCIN DIHYDRATE
     Indication: Product used for unknown indication
     Route: 065
  14. METHOTREXATE SODIUM [Suspect]
     Active Substance: METHOTREXATE SODIUM
     Indication: Rheumatoid arthritis
     Route: 065
     Dates: start: 20230913, end: 20230913
  15. METHOTREXATE SODIUM [Suspect]
     Active Substance: METHOTREXATE SODIUM
     Indication: Rheumatoid arthritis
     Dosage: FORM STRENGTH: 12.5 MILLIGRAM
     Route: 058
     Dates: start: 20231019, end: 20231019
  16. METHOTREXATE SODIUM [Suspect]
     Active Substance: METHOTREXATE SODIUM
     Indication: Rheumatoid arthritis
     Dosage: METHOTREXATE (METOJECT)
     Route: 065
     Dates: start: 20230405, end: 20230405
  17. METHOTREXATE SODIUM [Suspect]
     Active Substance: METHOTREXATE SODIUM
     Indication: Rheumatoid arthritis
     Route: 058
     Dates: start: 20231005, end: 20231005
  18. METHOTREXATE SODIUM [Suspect]
     Active Substance: METHOTREXATE SODIUM
     Indication: Rheumatoid arthritis
     Route: 065
     Dates: start: 20230412, end: 20230412
  19. METHOTREXATE SODIUM [Suspect]
     Active Substance: METHOTREXATE SODIUM
     Indication: Rheumatoid arthritis
     Dosage: FORM STRENGTH: 10 MILLIGRAM
     Route: 065
     Dates: start: 20230820, end: 20230820
  20. METHOTREXATE SODIUM [Suspect]
     Active Substance: METHOTREXATE SODIUM
     Indication: Rheumatoid arthritis
     Dosage: FORM STRENGTH: 10 MILLIGRAM
     Route: 065
     Dates: start: 20230517, end: 20230812
  21. METHOTREXATE SODIUM [Suspect]
     Active Substance: METHOTREXATE SODIUM
     Indication: Rheumatoid arthritis
     Route: 065
     Dates: start: 20230503, end: 20230503
  22. METHOTREXATE SODIUM [Suspect]
     Active Substance: METHOTREXATE SODIUM
     Indication: Rheumatoid arthritis
     Dosage: FORM STRENGTH: 12.5 MILLIGRAM
     Route: 065
     Dates: start: 20230905, end: 20230905
  23. METHOTREXATE SODIUM [Suspect]
     Active Substance: METHOTREXATE SODIUM
     Indication: Rheumatoid arthritis
     Route: 065
     Dates: start: 20230510, end: 20230510
  24. METHOTREXATE SODIUM [Suspect]
     Active Substance: METHOTREXATE SODIUM
     Indication: Rheumatoid arthritis
     Dosage: FORM STRENGTH: 15 MILLIGRAM
     Route: 058
     Dates: start: 20231012, end: 20231012
  25. METHOTREXATE SODIUM [Suspect]
     Active Substance: METHOTREXATE SODIUM
     Indication: Rheumatoid arthritis
     Route: 065
     Dates: start: 20230419, end: 20230419
  26. METHOTREXATE SODIUM [Suspect]
     Active Substance: METHOTREXATE SODIUM
     Indication: Rheumatoid arthritis
     Dosage: FORM STRENGTH: 10 MILLIGRAM
     Route: 065
     Dates: start: 20230828, end: 20230828
  27. TOKISHIGYAKUKAGOSHUYUSHOKYOTO [Concomitant]
     Indication: Chillblains
     Dosage: TIME INTERVAL: 0.33333333 DAYS: 7.5 GRAM?HERBAL MEDICINE (TOKISHIGYAKUKAGOSHUYUSHOKYOTO)
     Route: 048
     Dates: start: 20231017
  28. TOKISHIGYAKUKAGOSHUYUSHOKYOTO [Concomitant]
     Indication: Chillblains
     Dosage: TIME INTERVAL: 0.33333333 DAYS: 7.5 GRAM?HERBAL MEDICINE (TOKISHIGYAKUKAGOSHUYUSHOKYOTO)
     Route: 048
     Dates: start: 20221019, end: 20230620
  29. VONOPRAZAN FUMARATE [Concomitant]
     Active Substance: VONOPRAZAN FUMARATE
     Indication: Gastrooesophageal reflux disease
     Dosage: 10 MILLIGRAM
     Route: 048
     Dates: start: 20161220
  30. CALCITRIOL [Concomitant]
     Active Substance: CALCITRIOL
     Indication: Osteoporosis
     Dosage: FORM STRENGTH: 0.5
     Dates: start: 20050510, end: 20110830
  31. CARTOL [Concomitant]
     Indication: Osteoporosis
     Dosage: FORM STRENGTH: 0.5
     Dates: start: 20110831, end: 20170418
  32. MINODRONIC ACID [Concomitant]
     Active Substance: MINODRONIC ACID
     Indication: Osteoporosis
     Dosage: MINODRONIC ACID HYDRATE?FORM STRENGTH: 50
     Dates: start: 20190901
  33. INFLUENZA VIRUS VACCINE [Suspect]
     Active Substance: INFLUENZA VIRUS VACCINE
     Indication: Product used for unknown indication
     Route: 065

REACTIONS (4)
  - Pneumonia [Recovering/Resolving]
  - Angular cheilitis [Unknown]
  - Rhinorrhoea [Unknown]
  - Oxygen saturation decreased [Unknown]

NARRATIVE: CASE EVENT DATE: 20231013
